FAERS Safety Report 15744227 (Version 1)
Quarter: 2018Q4

REPORT INFORMATION
  Report Type: Spontaneous
  Country: US (occurrence: US)
  Receive Date: 20181205
  Receipt Date: 20181205
  Transmission Date: 20190205
  Serious: No
  Sender: FDA-Public Use
  Company Number: None

PATIENT
  Age: 54 Year
  Sex: Male

DRUGS (2)
  1. DESCOVY [Suspect]
     Active Substance: EMTRICITABINE\TENOFOVIR ALAFENAMIDE FUMARATE
  2. TIVICAY [Suspect]
     Active Substance: DOLUTEGRAVIR SODIUM
     Route: 048
     Dates: start: 201810

REACTIONS (1)
  - Headache [None]

NARRATIVE: CASE EVENT DATE: 20181203
